FAERS Safety Report 8233162-9 (Version None)
Quarter: 2012Q1

REPORT INFORMATION
  Report Type: 
  Country: None (occurrence: None)
  Receive Date: 20120326
  Receipt Date: 20120315
  Transmission Date: 20120608
  Serious: Yes (Other)
  Sender: FDA-Public Use
  Company Number: US-PFIZER INC-2012051660

PATIENT
  Sex: Female
  Weight: 54.422 kg

DRUGS (4)
  1. LYRICA [Suspect]
     Indication: PAIN
     Dosage: 150 MG, 1X/DAY
     Route: 048
     Dates: start: 20100501, end: 20100101
  2. KLONOPIN [Concomitant]
     Indication: ANXIETY
     Dosage: UNK
  3. HALCION [Concomitant]
     Indication: SLEEP DISORDER
     Dosage: UNK
  4. LYRICA [Suspect]
     Indication: AFFECTIVE DISORDER
     Dosage: 600 MG, UNK
     Route: 048
     Dates: start: 20100101

REACTIONS (5)
  - CYSTITIS [None]
  - ALOPECIA [None]
  - DIPLOPIA [None]
  - GENERAL PHYSICAL HEALTH DETERIORATION [None]
  - VISION BLURRED [None]
